FAERS Safety Report 11045375 (Version 1)
Quarter: 2015Q2

REPORT INFORMATION
  Report Type: Spontaneous
  Country: US (occurrence: US)
  Receive Date: 20150417
  Receipt Date: 20150417
  Transmission Date: 20150821
  Serious: No
  Sender: FDA-Public Use
  Company Number: US-009507513-1504USA012630

PATIENT
  Age: 22 Year
  Sex: Female

DRUGS (2)
  1. DIFLUCAN [Concomitant]
     Active Substance: FLUCONAZOLE
     Dosage: UNK
  2. NEXPLANON [Suspect]
     Active Substance: ETONOGESTREL
     Indication: CONTRACEPTION
     Dosage: 1 DF, 68MG UNK
     Route: 059
     Dates: start: 20150304, end: 20150413

REACTIONS (2)
  - Implant site vesicles [Recovering/Resolving]
  - Implant site discharge [Recovering/Resolving]

NARRATIVE: CASE EVENT DATE: 20150331
